FAERS Safety Report 8768501 (Version 2)
Quarter: 2012Q4

REPORT INFORMATION
  Report Type: Report from Study
  Country: IL (occurrence: IL)
  Receive Date: 20120905
  Receipt Date: 20121024
  Transmission Date: 20130627
  Serious: Yes (Hospitalization)
  Sender: FDA-Public Use
  Company Number: IL-ROCHE-1112634

PATIENT
  Age: 49 Year
  Sex: Female

DRUGS (6)
  1. RITUXIMAB [Suspect]
     Indication: RHEUMATOID ARTHRITIS
     Dosage: last dose proir to SAE on 17/Apr/2012
     Route: 042
     Dates: start: 20040616
  2. METHYLPREDNISOLONE [Suspect]
     Indication: RHEUMATOID ARTHRITIS
     Dosage: last dose proir to SAE on 17/Apr/2012
     Route: 042
     Dates: start: 20040616
  3. METHOTREXATE [Suspect]
     Indication: RHEUMATOID ARTHRITIS
     Route: 048
     Dates: start: 20071019
  4. METHOTREXATE [Suspect]
     Route: 065
     Dates: start: 20041014, end: 20120830
  5. FOLIC ACID [Concomitant]
     Route: 065
     Dates: start: 20040623
  6. ALGOLYSIN FORTE [Concomitant]
     Route: 065
     Dates: start: 20080523

REACTIONS (1)
  - Febrile neutropenia [Recovered/Resolved]
